FAERS Safety Report 14116850 (Version 1)
Quarter: 2017Q4

REPORT INFORMATION
  Report Type: Spontaneous
  Country: US (occurrence: US)
  Receive Date: 20171023
  Receipt Date: 20171023
  Transmission Date: 20180321
  Serious: Yes (Other)
  Sender: FDA-Public Use
  Company Number: US-INTERCEPT-PMOCA2017001171

PATIENT

DRUGS (1)
  1. OCALIVA [Suspect]
     Active Substance: OBETICHOLIC ACID

REACTIONS (4)
  - Depressed mood [Unknown]
  - Pruritus [Unknown]
  - Suicidal ideation [Unknown]
  - Lethargy [Unknown]
